FAERS Safety Report 8806955 (Version 1)
Quarter: 2012Q4

REPORT INFORMATION
  Report Type: 
  Country: US (occurrence: US)
  Receive Date: 20120925
  Receipt Date: 20120925
  Transmission Date: 20130627
  Serious: Yes (Death, Other)
  Sender: FDA-Public Use
  Company Number: US-ROCHE-1095586

PATIENT
  Sex: Female

DRUGS (9)
  1. AVASTIN [Suspect]
     Indication: RECTAL CANCER
     Route: 065
  2. AVASTIN [Suspect]
     Indication: RECTOSIGMOID CANCER
  3. AVASTIN [Suspect]
     Indication: ANAL CANCER
  4. FOLINIC ACID [Concomitant]
  5. FLUOROURACIL [Concomitant]
  6. OXALIPLATIN [Concomitant]
  7. PANITUMUMAB [Concomitant]
  8. ERBITUX [Concomitant]
  9. IRINOTECAN [Concomitant]

REACTIONS (3)
  - Death [Fatal]
  - Gastrointestinal toxicity [Unknown]
  - Metastases to lung [Unknown]
